FAERS Safety Report 7278884-1 (Version None)
Quarter: 2011Q1

REPORT INFORMATION
  Report Type: 
  Country: None (occurrence: None)
  Receive Date: 20110207
  Receipt Date: 20110128
  Transmission Date: 20110831
  Serious: Yes (Other)
  Sender: FDA-Public Use
  Company Number: US-JNJFOC-20110107987

PATIENT

DRUGS (1)
  1. REMICADE [Suspect]
     Indication: FAMILIAL MEDITERRANEAN FEVER
     Route: 042

REACTIONS (2)
  - MALAISE [None]
  - RELAPSING FEVER [None]
